FAERS Safety Report 13074057 (Version 1)
Quarter: 2016Q4

REPORT INFORMATION
  Report Type: Other
  Country: GB (occurrence: TT)
  Receive Date: 20161229
  Receipt Date: 20161229
  Transmission Date: 20170207
  Serious: Yes (Disabling, Other)
  Sender: FDA-Public Use
  Company Number: TT-INTERNATIONAL MEDICATION SYSTEMS, LIMITED-1061403

PATIENT
  Age: 36 Year
  Sex: Male

DRUGS (6)
  1. DOPAMINE [Suspect]
     Active Substance: DOPAMINE\DOPAMINE HYDROCHLORIDE
     Route: 042
  2. EPINEPHRINE. [Suspect]
     Active Substance: EPINEPHRINE
     Route: 041
  3. EPINEPHRINE. [Suspect]
     Active Substance: EPINEPHRINE
     Indication: CARDIAC ARREST
     Route: 042
  4. ATROPINE. [Concomitant]
     Active Substance: ATROPINE
     Route: 042
  5. DOPAMINE [Suspect]
     Active Substance: DOPAMINE\DOPAMINE HYDROCHLORIDE
     Route: 041
  6. EPINEPHRINE. [Suspect]
     Active Substance: EPINEPHRINE
     Route: 042

REACTIONS (2)
  - Amputation [Not Recovered/Not Resolved]
  - Gangrene [Recovered/Resolved]
